FAERS Safety Report 11331063 (Version 3)
Quarter: 2015Q4

REPORT INFORMATION
  Report Type: Spontaneous
  Country: US (occurrence: US)
  Receive Date: 20150803
  Receipt Date: 20151002
  Transmission Date: 20160304
  Serious: Yes (Life-Threatening, Hospitalization)
  Sender: FDA-Public Use
  Company Number: US-ACTELION-A-NJ2015-121648

PATIENT
  Age: 28 Year
  Sex: Female

DRUGS (4)
  1. LETAIRIS [Concomitant]
     Active Substance: AMBRISENTAN
     Dosage: 5 MG, QD
     Dates: start: 20150707
  2. XARELTO [Concomitant]
     Active Substance: RIVAROXABAN
  3. VELETRI [Suspect]
     Active Substance: EPOPROSTENOL
     Indication: PULMONARY ARTERIAL HYPERTENSION
     Dosage: 30 NG/KG, PER MIN
     Route: 042
     Dates: start: 20130418
  4. ADCIRCA [Concomitant]
     Active Substance: TADALAFIL
     Dosage: 40 MG, QD
     Dates: start: 201304

REACTIONS (9)
  - Acute kidney injury [Recovered/Resolved]
  - Thrombocytopenia [Recovering/Resolving]
  - Haemorrhagic ovarian cyst [Recovered/Resolved]
  - Post procedural complication [Unknown]
  - Anaemia [Recovering/Resolving]
  - Ovarian cyst ruptured [Recovered/Resolved]
  - Ovarian cystectomy [Unknown]
  - Localised intraabdominal fluid collection [Recovered/Resolved]
  - Dialysis [Recovered/Resolved]

NARRATIVE: CASE EVENT DATE: 201507
